FAERS Safety Report 9433580 (Version 2)
Quarter: 2013Q3

REPORT INFORMATION
  Report Type: Report from Study
  Country: US (occurrence: US)
  Receive Date: 20130731
  Receipt Date: 20130807
  Transmission Date: 20140515
  Serious: Yes (Hospitalization, Other)
  Sender: FDA-Public Use
  Company Number: PHEH2013US016029

PATIENT
  Age: 80 Year
  Sex: Male

DRUGS (1)
  1. EXELON PATCH [Suspect]
     Indication: DEMENTIA ALZHEIMER^S TYPE
     Dosage: 9.5 MG DAILY
     Route: 062
     Dates: end: 20130626

REACTIONS (10)
  - Loss of consciousness [Recovered/Resolved]
  - Pallor [Recovered/Resolved]
  - Eye movement disorder [Recovered/Resolved]
  - Hyperhidrosis [Recovered/Resolved]
  - Fall [Recovered/Resolved]
  - Hypotension [Recovered/Resolved]
  - Confusional state [Recovered/Resolved]
  - Delusion [Recovered/Resolved]
  - Diarrhoea [Recovered/Resolved]
  - Hallucination [Recovered/Resolved]
